FAERS Safety Report 8612158-9 (Version None)
Quarter: 2012Q3

REPORT INFORMATION
  Report Type: 
  Country: None (occurrence: None)
  Receive Date: 20120822
  Receipt Date: 20120816
  Transmission Date: 20120928
  Serious: Yes (Other)
  Sender: FDA-Public Use
  Company Number: US-PFIZER INC-2012201029

PATIENT

DRUGS (5)
  1. LIPITOR [Suspect]
     Dosage: UNK
  2. NORVASC [Suspect]
     Dosage: UNK
  3. CHANTIX [Suspect]
  4. VIAGRA [Suspect]
     Dosage: UNK
  5. ACCUPRIL [Suspect]
     Dosage: UNK

REACTIONS (7)
  - CARDIAC DISORDER [None]
  - RENAL FAILURE [None]
  - ANGINA PECTORIS [None]
  - BLOOD POTASSIUM INCREASED [None]
  - BLOOD MAGNESIUM DECREASED [None]
  - HYPERTENSION [None]
  - THYROID DISORDER [None]
